FAERS Safety Report 8250504-9 (Version None)
Quarter: 2012Q2

REPORT INFORMATION
  Report Type: 
  Country: None (occurrence: None)
  Receive Date: 20120402
  Receipt Date: 20120402
  Transmission Date: 20120825
  Serious: No
  Sender: FDA-Public Use
  Company Number: None

PATIENT
  Age: 30 Year
  Sex: Female
  Weight: 61.688 kg

DRUGS (2)
  1. NORGESTIMATE/ETHINYL ESTRADIOL [Suspect]
     Indication: CONTRACEPTION
     Dosage: 1 PILL
     Route: 048
  2. NORGESTIMATE/ETHINYL ESTRADIOL [Concomitant]
     Dosage: 1 PILL
     Route: 048

REACTIONS (4)
  - MEDICATION ERROR [None]
  - MATERNAL EXPOSURE DURING PREGNANCY [None]
  - PRODUCT PACKAGING ISSUE [None]
  - UNINTENDED PREGNANCY [None]
